FAERS Safety Report 10715949 (Version 1)
Quarter: 2015Q1

REPORT INFORMATION
  Report Type: Spontaneous
  Country: US (occurrence: None)
  Receive Date: 20150109
  Receipt Date: 20150109
  Transmission Date: 20150721
  Serious: Yes (Other)
  Sender: FDA-Public Use
  Company Number: 2014PROUSA03880

PATIENT
  Age: 60 Year
  Sex: Male
  Weight: 60.8 kg

DRUGS (5)
  1. PROVENGE [Suspect]
     Active Substance: SIPULEUCEL-T
     Indication: PROSTATE CANCER METASTATIC
     Dosage: SINGLE
     Route: 042
     Dates: start: 20140609, end: 20140609
  2. OXYCODONE [Concomitant]
     Active Substance: OXYCODONE
  3. LUPRON (LEUPRORELIN ACETATE) [Concomitant]
  4. ZOMETA [Concomitant]
     Active Substance: ZOLEDRONIC ACID
  5. PRILOSEC (OMEPRAZOLE) [Concomitant]
     Active Substance: OMEPRAZOLE MAGNESIUM

REACTIONS (1)
  - Anaemia [None]

NARRATIVE: CASE EVENT DATE: 20140711
